FAERS Safety Report 5652989-0 (Version None)
Quarter: 2008Q1

REPORT INFORMATION
  Report Type: 
  Country: None (occurrence: None)
  Receive Date: 20080306
  Receipt Date: 20080229
  Transmission Date: 20080703
  Serious: Yes (Hospitalization, Other)
  Sender: FDA-Public Use
  Company Number: US-AVENTIS-200715742US

PATIENT
  Sex: Female
  Weight: 55.3 kg

DRUGS (36)
  1. ALLEGRA-D 12 HOUR [Suspect]
     Indication: SEASONAL ALLERGY
     Route: 048
     Dates: start: 20030101, end: 20070301
  2. CARDIA [Concomitant]
     Indication: ATRIAL FIBRILLATION
     Dosage: DOSE: UNK
     Dates: start: 20051201
  3. DIGOXIN [Concomitant]
     Dates: start: 20060501
  4. SOTALOL [Concomitant]
     Dates: start: 20060501
  5. WARFARIN SODIUM [Concomitant]
     Indication: ATRIAL FIBRILLATION
     Route: 048
     Dates: start: 20051201
  6. WARFARIN SODIUM [Concomitant]
     Route: 048
  7. WARFARIN SODIUM [Concomitant]
     Indication: CEREBROVASCULAR ACCIDENT
     Route: 048
     Dates: start: 20051201
  8. WARFARIN SODIUM [Concomitant]
     Route: 048
  9. VYTORIN [Concomitant]
     Dosage: DOSE: 10/20
  10. SYNTHROID [Concomitant]
     Indication: HYPOTHYROIDISM
     Route: 048
     Dates: start: 19750101
  11. LASIX [Concomitant]
     Dates: start: 20020101
  12. K-DUR 10 [Concomitant]
     Dates: start: 20020101, end: 20071001
  13. SPIRIVA [Concomitant]
     Dosage: DOSE: UNK
  14. FISH OIL [Concomitant]
  15. QVAR 40 [Concomitant]
     Dosage: DOSE: UNK
  16. EVISTA [Concomitant]
     Dosage: DOSE: UNK
  17. ZOCOR [Concomitant]
     Dosage: DOSE: UNK
  18. INDAPAMIDE [Concomitant]
     Dosage: DOSE: UNK
  19. ADVAIR DISKUS 100/50 [Concomitant]
     Dosage: DOSE: UNK
  20. XOPENEX [Concomitant]
     Dosage: DOSE: UNK
  21. PREDNISONE TAB [Concomitant]
     Dosage: DOSE: UNK
  22. LIPITOR [Concomitant]
     Dosage: DOSE: UNK
  23. VITAMINS [Concomitant]
     Dosage: DOSE: UNK
  24. CARTIA XT                          /00489701/ [Concomitant]
     Route: 048
  25. B COMPLEX                          /00212701/ [Concomitant]
     Dosage: DOSE: UNK
  26. ASCORBIC ACID [Concomitant]
     Dosage: DOSE: UNK
  27. CALCIUM WITH VITAMIN D             /01233101/ [Concomitant]
     Dosage: DOSE: UNK
  28. COENZYME Q10 [Concomitant]
     Dosage: DOSE: UNK
  29. ALBUTEROL [Concomitant]
     Dosage: DOSE: UNK
  30. AMBIEN [Concomitant]
     Dosage: DOSE: UNK
  31. NAPROSYN [Concomitant]
     Dosage: DOSE: UNK
  32. VOLTAREN [Concomitant]
     Dosage: DOSE: UNK
  33. MEDROL [Concomitant]
     Dosage: DOSE: UNK
  34. VIOXX [Concomitant]
     Dosage: DOSE: UNK
  35. QUAVIR [Concomitant]
     Dosage: DOSE: UNK
     Route: 055
  36. CLARINEX [Concomitant]
     Dosage: DOSE: UNK

REACTIONS (28)
  - ABDOMINAL PAIN [None]
  - ADENOMYOSIS [None]
  - ADHESION [None]
  - BLOOD POTASSIUM DECREASED [None]
  - CARDIAC MURMUR [None]
  - CHEST DISCOMFORT [None]
  - CHEST PAIN [None]
  - CONVULSION [None]
  - CYSTITIS INTERSTITIAL [None]
  - DYSPNOEA [None]
  - GOITRE [None]
  - HYPOAESTHESIA [None]
  - LARYNGITIS [None]
  - LEFT VENTRICULAR HYPERTROPHY [None]
  - MALAISE [None]
  - MASS [None]
  - MEDICATION RESIDUE [None]
  - MITRAL VALVE INCOMPETENCE [None]
  - MYOCARDIAL INFARCTION [None]
  - PALPITATIONS [None]
  - PARAESTHESIA [None]
  - RENAL CYST [None]
  - SINUSITIS [None]
  - THERAPEUTIC AGENT TOXICITY [None]
  - THYROIDITIS CHRONIC [None]
  - TRICUSPID VALVE INCOMPETENCE [None]
  - URINARY INCONTINENCE [None]
  - VOMITING [None]
